FAERS Safety Report 9323879 (Version 1)
Quarter: 2013Q2

REPORT INFORMATION
  Report Type: Spontaneous
  Country: US (occurrence: US)
  Receive Date: 20130603
  Receipt Date: 20130603
  Transmission Date: 20140414
  Serious: No
  Sender: FDA-Public Use
  Company Number: US-BAYER-2013-066924

PATIENT
  Age: 38 Year
  Sex: Female

DRUGS (10)
  1. BETASERON [Suspect]
     Dosage: 0.25 MG, QOD
     Dates: start: 199306
  2. BACLOFEN [Concomitant]
     Dosage: 10 MG, UNK
     Route: 048
  3. EFFEXOR XR [Concomitant]
     Dosage: 75 MG, UNK
     Route: 048
  4. LYRICA [Concomitant]
     Dosage: 100 MG, UNK
     Route: 048
  5. TYLENOL [PARACETAMOL] [Concomitant]
     Route: 048
  6. DANTROLENE [Concomitant]
     Dosage: 100 MG, UNK
     Route: 048
  7. TORADOL [Concomitant]
     Dosage: 10 MG, UNK
     Route: 048
  8. VERAPAMIL SLOW RELEASE [Concomitant]
     Dosage: 120 MG, UNK
     Route: 048
  9. TIZANIDINE [Concomitant]
     Dosage: 4 MG, UNK
     Route: 048
  10. LORAZEPAM [Concomitant]
     Dosage: 1 MG, UNK
     Route: 048

REACTIONS (1)
  - Influenza like illness [Recovered/Resolved]
